FAERS Safety Report 4621348-1 (Version None)
Quarter: 2005Q1

REPORT INFORMATION
  Report Type: 
  Country: None (occurrence: None)
  Receive Date: 20050324
  Receipt Date: 20050324
  Transmission Date: 20050727
  Serious: Yes (Other)
  Sender: FDA-Public Use
  Company Number: None

PATIENT
  Age: 11 Year
  Sex: Female
  Weight: 39.4629 kg

DRUGS (2)
  1. MOTRIN [Suspect]
     Indication: PAIN
     Dosage: 3 TABLETS    6 HOURS   ORAL
     Route: 048
     Dates: start: 20050321, end: 20050321
  2. MOTRIN [Suspect]
     Indication: PYREXIA
     Dosage: 3 TABLETS    6 HOURS   ORAL
     Route: 048
     Dates: start: 20050321, end: 20050321

REACTIONS (8)
  - DYSPHAGIA [None]
  - ERYTHEMA [None]
  - EYELID OEDEMA [None]
  - HEART RATE INCREASED [None]
  - MEDICATION ERROR [None]
  - PRURITUS [None]
  - SKIN WARM [None]
  - SWELLING FACE [None]
